FAERS Safety Report 9419219 (Version 1)
Quarter: 2013Q3

REPORT INFORMATION
  Report Type: Spontaneous
  Country: AU (occurrence: AU)
  Receive Date: 20130725
  Receipt Date: 20130725
  Transmission Date: 20140515
  Serious: Yes (Hospitalization)
  Sender: FDA-Public Use
  Company Number: AU-MERCK-1307AUS007835

PATIENT
  Age: 30 Month
  Sex: Male
  Weight: 12.6 kg

DRUGS (3)
  1. LORATADINE [Suspect]
     Dosage: UPTO 6
     Dates: start: 20111005
  2. AUGMENTIN [Suspect]
     Dosage: 3 TO 4
     Dates: start: 20111005
  3. DIGESIC [Suspect]
     Dosage: 7 MAX
     Dates: start: 20111005

REACTIONS (3)
  - Accidental exposure to product by child [Unknown]
  - Overdose [Unknown]
  - No adverse event [Unknown]
